FAERS Safety Report 7498465-4 (Version None)
Quarter: 2011Q2

REPORT INFORMATION
  Report Type: 
  Country: None (occurrence: None)
  Receive Date: 20110516
  Receipt Date: 20110428
  Transmission Date: 20111010
  Serious: Yes (Other)
  Sender: FDA-Public Use
  Company Number: WAES1105USA01470

PATIENT
  Age: 71 Year
  Sex: Male
  Weight: 79.8331 kg

DRUGS (7)
  1. BISOPROLOL FUMARATE [Concomitant]
  2. PLACEBO [Concomitant]
  3. COZAAR [Suspect]
     Dosage: PO
     Route: 048
     Dates: start: 20081124
  4. BLINDED THERAPY [Concomitant]
  5. SIMVASTATIN [Concomitant]
  6. TROMBYL [Concomitant]
  7. OMEPRAZOLE [Concomitant]

REACTIONS (1)
  - BASAL CELL CARCINOMA [None]
